FAERS Safety Report 17112002 (Version 1)
Quarter: 2019Q4

REPORT INFORMATION
  Report Type: Spontaneous
  Country: US (occurrence: US)
  Receive Date: 20191203
  Receipt Date: 20191203
  Transmission Date: 20200122
  Serious: Yes (Hospitalization)
  Sender: FDA-Public Use
  Company Number: None

PATIENT
  Age: 84 Year
  Sex: Female
  Weight: 57.6 kg

DRUGS (12)
  1. BIOTIN 10000MCG BID [Concomitant]
  2. CALCIUM CARBONATE/VITAMIN D3 600MG DAILY [Concomitant]
  3. PANTOPRAZOLE 40MG DAILY [Concomitant]
  4. IMATINIB 400MG DAILY [Concomitant]
  5. FISH OIL 1200MG DAILY [Concomitant]
  6. DIGOXIN 0.125MG DAILY [Concomitant]
  7. BUPRENORPHINE 20MCG/HR PATCH WEEKLY [Concomitant]
  8. FLUOXETINE 20MG DAILY [Concomitant]
  9. DABIGATRAN [Suspect]
     Active Substance: DABIGATRAN
     Indication: ATRIAL FIBRILLATION
     Route: 029
     Dates: start: 20151130
  10. PEROXICAM 10MG DAILY [Concomitant]
  11. AMLODIPINE 5MG DAILY [Concomitant]
  12. FUROSEMIDE 20MG BID [Concomitant]

REACTIONS (1)
  - Cerebrovascular accident [None]

NARRATIVE: CASE EVENT DATE: 20160718
